FAERS Safety Report 10478140 (Version 1)
Quarter: 2014Q3

REPORT INFORMATION
  Report Type: Spontaneous
  Country: US (occurrence: US)
  Receive Date: 20140926
  Receipt Date: 20140926
  Transmission Date: 20150326
  Serious: No
  Sender: FDA-Public Use
  Company Number: US-PFIZER INC-2014264651

PATIENT
  Age: 70 Year
  Sex: Female
  Weight: 94.79 kg

DRUGS (2)
  1. SUTENT [Suspect]
     Active Substance: SUNITINIB MALATE
     Dosage: 25 MG, 1X/DAY
     Route: 048
     Dates: start: 2014, end: 20140915
  2. SUTENT [Suspect]
     Active Substance: SUNITINIB MALATE
     Indication: RENAL CANCER
     Dosage: 50 MG, 1X/DAY
     Route: 048
     Dates: start: 20140624

REACTIONS (4)
  - Renal cancer [Unknown]
  - Metabolic function test abnormal [Unknown]
  - Full blood count abnormal [Unknown]
  - Disease progression [Unknown]

NARRATIVE: CASE EVENT DATE: 2014
